FAERS Safety Report 5832090-3 (Version None)
Quarter: 2008Q3

REPORT INFORMATION
  Report Type: 
  Country: None (occurrence: None)
  Receive Date: 20080804
  Receipt Date: 20080725
  Transmission Date: 20090109
  Serious: Yes (Life-Threatening)
  Sender: FDA-Public Use
  Company Number: NL-NOVOPROD-277801

PATIENT
  Age: 87 Year
  Sex: Male
  Weight: 61 kg

DRUGS (9)
  1. NOVONORM [Suspect]
     Indication: INSULIN-REQUIRING TYPE 2 DIABETES MELLITUS
     Dosage: 2 MG, TID
     Dates: start: 20080410, end: 20080523
  2. OMEPRAZOL                          /00661201/ [Concomitant]
     Dosage: 40 MG, QD
     Route: 048
  3. ASCAL CARDIO [Concomitant]
     Dosage: 100 MG, QD
  4. METOPROLOL TARTRATE [Concomitant]
     Dosage: 50 MG, QD
     Route: 048
  5. FOSINOPRILNATRIUM SANDOZ [Concomitant]
     Dosage: 20 MG, QD
     Route: 048
  6. ALLOPURINOL SANDOZ [Concomitant]
     Dosage: 100 MG, QD
     Route: 048
  7. FUROSEMIDE [Concomitant]
     Dosage: 40 MG, BID
     Route: 048
  8. SIMVASTATIN [Concomitant]
     Dosage: 20 MG, QD
     Route: 048
  9. ISORDIL [Concomitant]
     Dosage: 5 MG, PRN
     Route: 048

REACTIONS (1)
  - RENAL FAILURE [None]
